FAERS Safety Report 12928093 (Version 4)
Quarter: 2017Q1

REPORT INFORMATION
  Report Type: Spontaneous
  Country: CZ (occurrence: CZ)
  Receive Date: 20161110
  Receipt Date: 20170227
  Transmission Date: 20170428
  Serious: Yes (Hospitalization)
  Sender: FDA-Public Use
  Company Number: CZ-B.I. PHARMACEUTICALS,INC./RIDGEFIELD-2016-BI-070143

PATIENT
  Age: 71 Year
  Sex: Male

DRUGS (13)
  1. PROPAFENON [Concomitant]
     Active Substance: PROPAFENONE
     Indication: PRODUCT USED FOR UNKNOWN INDICATION
     Route: 065
     Dates: start: 20160818
  2. FOXIS [Concomitant]
     Indication: PRODUCT USED FOR UNKNOWN INDICATION
     Route: 065
     Dates: start: 2014
  3. INDAPMIDUM [Concomitant]
     Indication: SUPPORTIVE CARE
     Route: 065
     Dates: start: 20160701
  4. LETROX [Concomitant]
     Active Substance: LEVOTHYROXINE SODIUM
     Indication: PRODUCT USED FOR UNKNOWN INDICATION
     Route: 065
     Dates: start: 2000
  5. EMPAGLIFLOZIN [Suspect]
     Active Substance: EMPAGLIFLOZIN
     Indication: HYPERGLYCAEMIA
     Route: 065
     Dates: start: 20150805
  6. METFORMIN [Concomitant]
     Active Substance: METFORMIN HYDROCHLORIDE
     Indication: HYPERGLYCAEMIA
     Route: 065
     Dates: start: 20120418
  7. PERINDOPRILUM [Concomitant]
     Indication: SUPPORTIVE CARE
     Route: 065
     Dates: start: 20160701
  8. SPIRONOLACTONI [Concomitant]
     Indication: SUPPORTIVE CARE
     Route: 065
     Dates: start: 2005
  9. WARFARIN [Concomitant]
     Active Substance: WARFARIN
     Indication: PRODUCT USED FOR UNKNOWN INDICATION
     Route: 065
     Dates: start: 20160729
  10. AMLODIPINI BESILAS [Concomitant]
     Indication: SUPPORTIVE CARE
     Route: 065
     Dates: start: 20160701
  11. TAMSULOSINI HYDROCHLORIDUM [Concomitant]
     Indication: PRODUCT USED FOR UNKNOWN INDICATION
     Route: 065
     Dates: start: 2010
  12. SERTRALINI [Concomitant]
     Indication: PRODUCT USED FOR UNKNOWN INDICATION
     Route: 065
     Dates: start: 2005
  13. VERAPAMIL HYDROCHLORIDUM [Concomitant]
     Indication: SUPPORTIVE CARE
     Route: 065
     Dates: start: 2005

REACTIONS (3)
  - Atrial fibrillation [Recovered/Resolved]
  - Atrial tachycardia [Recovered/Resolved]
  - Sepsis [Recovered/Resolved]

NARRATIVE: CASE EVENT DATE: 20160729
